FAERS Safety Report 7450501-7 (Version None)
Quarter: 2011Q2

REPORT INFORMATION
  Report Type: 
  Country: None (occurrence: None)
  Receive Date: 20110502
  Receipt Date: 20110428
  Transmission Date: 20111010
  Serious: Yes (Hospitalization)
  Sender: FDA-Public Use
  Company Number: US-BRISTOL-MYERS SQUIBB COMPANY-15705734

PATIENT
  Age: 67 Year
  Sex: Female

DRUGS (7)
  1. ONGLYZA [Concomitant]
  2. CYMBALTA [Concomitant]
  3. METOPROLOL SUCCINATE [Concomitant]
  4. LOVAZA [Concomitant]
     Dosage: 1DF:4 UNITS NOS CAPS
  5. VITAMIN D [Concomitant]
  6. SPRYCEL [Suspect]
     Indication: CHRONIC MYELOID LEUKAEMIA
     Dosage: 140MG 1ST 2 WKS DOSE REDUCED TO 100MG QD
  7. LOVENOX [Suspect]

REACTIONS (2)
  - SCIATIC NERVE PALSY [None]
  - HAEMORRHAGE [None]
